FAERS Safety Report 8809157 (Version 2)
Quarter: 2012Q4

REPORT INFORMATION
  Report Type: Spontaneous
  Country: US (occurrence: None)
  Receive Date: 20120920
  Receipt Date: 20121001
  Transmission Date: 20130627
  Serious: Yes (Other)
  Sender: FDA-Public Use
  Company Number: JPI-P-025112

PATIENT
  Age: 33 Year
  Sex: Female
  Weight: 70.76 kg

DRUGS (6)
  1. XYREM [Suspect]
     Indication: HYPERSOMNIA
     Route: 048
     Dates: start: 20091030
  2. XYREM [Suspect]
     Indication: HYPERSOMNIA
     Route: 048
  3. CETIRIZINE HYDROCHLORIDE [Concomitant]
  4. AZELASTINE HYDROCHLORIDE [Concomitant]
  5. MONTELUKAST SODIUM [Concomitant]
  6. ALBUTEROL SULFATE [Concomitant]

REACTIONS (8)
  - Abortion spontaneous [None]
  - Infertility female [None]
  - Endometriosis [None]
  - Insomnia [None]
  - Exposure during pregnancy [None]
  - Throat irritation [None]
  - Chest pain [None]
  - Pregnancy [None]
